FAERS Safety Report 16862443 (Version 2)
Quarter: 2019Q4

REPORT INFORMATION
  Report Type: Spontaneous
  Country: FR (occurrence: FR)
  Receive Date: 20190927
  Receipt Date: 20191128
  Transmission Date: 20200122
  Serious: Yes (Other)
  Sender: FDA-Public Use
  Company Number: FR-TEVA-2019-FR-1115436

PATIENT
  Age: 67 Year
  Sex: Female

DRUGS (3)
  1. ROSUVASTATINE TEVA 5 MG [Suspect]
     Active Substance: ROSUVASTATIN
     Indication: HYPERCHOLESTEROLAEMIA
     Route: 048
     Dates: start: 20190624, end: 201908
  2. KARDEGIC [Concomitant]
     Active Substance: ASPIRIN DL-LYSINE
     Dosage: 75 MILLIGRAM DAILY;
     Route: 048
  3. PAROXETINE. [Concomitant]
     Active Substance: PAROXETINE
     Dates: start: 201901

REACTIONS (11)
  - Paralysis [Recovered/Resolved]
  - Weight increased [Unknown]
  - Sciatica [Recovered/Resolved]
  - Fatigue [Unknown]
  - Sensory disturbance [Not Recovered/Not Resolved]
  - Product substitution issue [Unknown]
  - Muscle spasms [Recovered/Resolved]
  - Musculoskeletal stiffness [Unknown]
  - Arthralgia [Unknown]
  - Myalgia [Recovered/Resolved]
  - Swelling [Recovered/Resolved]

NARRATIVE: CASE EVENT DATE: 20190624
